FAERS Safety Report 11204614 (Version 5)
Quarter: 2015Q3

REPORT INFORMATION
  Report Type: Report from Study
  Country: FR (occurrence: FR)
  Receive Date: 20150622
  Receipt Date: 20150813
  Transmission Date: 20151125
  Serious: Yes (Hospitalization)
  Sender: FDA-Public Use
  Company Number: FR-ROCHE-1448250

PATIENT
  Age: 80 Year
  Sex: Female
  Weight: 61.4 kg

DRUGS (13)
  1. BEVACIZUMAB [Suspect]
     Active Substance: BEVACIZUMAB
     Dosage: 29/MAY/2015 LAST DOSE PRIOR TO ADVERSE EVENT STROKE (15 MG/KG)
     Route: 042
     Dates: start: 20131227
  2. TAHOR [Concomitant]
     Active Substance: ATORVASTATIN CALCIUM
     Dosage: 80 MG/DAY
     Route: 065
     Dates: start: 20150706
  3. INEXIUM [Concomitant]
     Active Substance: ESOMEPRAZOLE
     Route: 065
     Dates: start: 20140215
  4. KARDEGIC [Concomitant]
     Active Substance: ASPIRIN LYSINE
     Route: 065
     Dates: start: 2009
  5. ESOMEPRAZOLE [Concomitant]
     Active Substance: ESOMEPRAZOLE
     Route: 065
  6. TEMOZOLOMIDE. [Suspect]
     Active Substance: TEMOZOLOMIDE
     Dosage: LAST DOSE PRIOR TO SAE: 05/AUG/2014?5 DAYS/CYCLE?DOSAGE FORM: 150MG/M2/DAY
     Route: 048
     Dates: start: 20140306
  7. BEVACIZUMAB [Suspect]
     Active Substance: BEVACIZUMAB
     Indication: GLIOBLASTOMA
     Dosage: DATE OF LAST DOSE PRIOR TO EVENT : 27/DEC/2013 ?DOSE-10 MG/KG
     Route: 042
     Dates: start: 20131227
  8. TEMOZOLOMIDE. [Suspect]
     Active Substance: TEMOZOLOMIDE
     Dosage: 05 AUG 2014 LAST DOSE PRIOR TO SAE 200/MG/M2/DAY
     Route: 048
     Dates: start: 20131227, end: 20140109
  9. BISOPROLOL [Concomitant]
     Active Substance: BISOPROLOL
     Route: 065
     Dates: start: 2009
  10. KEPPRA [Concomitant]
     Active Substance: LEVETIRACETAM
     Route: 065
     Dates: start: 20131112
  11. TEMOZOLOMIDE. [Suspect]
     Active Substance: TEMOZOLOMIDE
     Indication: GLIOBLASTOMA
     Dosage: 75 MG/KG?DATE OF LAST DOSE PRIOR TO EVENT : 05/AUG/2014?5 CYCLES/DAY?DOSAGE FORM: 150MG/M2
     Route: 048
     Dates: start: 20131227, end: 20140805
  12. KEPPRA [Concomitant]
     Active Substance: LEVETIRACETAM
     Route: 065
     Dates: start: 2009
  13. BEVACIZUMAB [Suspect]
     Active Substance: BEVACIZUMAB
     Dosage: DATE OF LAST DOSE PRIOR TO THIRD EPISODE OF EVENT : 21/NOV/2014 ?DOSE-10 MG/KG
     Route: 042
     Dates: start: 20140307, end: 20150616

REACTIONS (2)
  - Hypertension [Recovered/Resolved]
  - Cerebrovascular accident [Recovered/Resolved]

NARRATIVE: CASE EVENT DATE: 20140110
